FAERS Safety Report 7654353-1 (Version None)
Quarter: 2011Q3

REPORT INFORMATION
  Report Type: 
  Country: None (occurrence: None)
  Receive Date: 20110803
  Receipt Date: 20110801
  Transmission Date: 20111222
  Serious: Yes (Other)
  Sender: FDA-Public Use
  Company Number: US-PFIZER INC-2009268350

PATIENT
  Sex: Male
  Weight: 177 kg

DRUGS (13)
  1. ALLOPURINOL [Suspect]
     Indication: PAIN IN EXTREMITY
     Dosage: 300 MG, DAILY
     Dates: start: 20090101
  2. AMLODIPINE [Concomitant]
     Indication: HYPERTENSION
     Dosage: 10 MG, 1X/DAY
     Route: 048
     Dates: end: 20090902
  3. COLCHICINE [Suspect]
     Indication: PAIN IN EXTREMITY
     Dosage: 0.6 MG, DAILY
  4. LISINOPRIL [Concomitant]
     Indication: HYPERTENSION
     Dosage: 20 MG, 1X/DAY
     Route: 048
     Dates: start: 20010101
  5. HYDROCHLORTHIAZIDE [Concomitant]
     Indication: HYPERTENSION
     Dosage: 25 MG, 1X/DAY
     Route: 048
     Dates: start: 20040902
  6. FUROSEMIDE [Suspect]
     Indication: OEDEMA
     Dosage: 80 MG,DAILY
     Route: 048
     Dates: start: 20040101
  7. HYDROCHLORTHIAZIDE [Concomitant]
     Indication: OEDEMA
  8. NOVOLIN 70/30 [Concomitant]
     Indication: DIABETES MELLITUS
     Dosage: 90 IU, 1X/DAY
     Route: 058
     Dates: start: 19990101
  9. METOPROLOL [Concomitant]
     Indication: HYPERTENSION
     Dosage: 25 MG, 2X/DAY
     Route: 048
     Dates: start: 20010101
  10. SIMVASTATIN [Concomitant]
     Indication: BLOOD CHOLESTEROL INCREASED
     Dosage: 40 MG, DAILY
     Route: 048
     Dates: start: 20090801
  11. ACETYLSALICYLIC ACID [Concomitant]
     Indication: CARDIAC FAILURE CONGESTIVE
     Dosage: 81 MG, DAILY
  12. LYRICA [Suspect]
     Indication: DIABETIC NEUROPATHY
     Dosage: 75 MG, 2X/DAY
     Route: 048
     Dates: start: 20090201, end: 20100101
  13. LYRICA [Suspect]
     Indication: PAIN IN EXTREMITY
     Dosage: 100 MG, DAILY
     Route: 048
     Dates: start: 20100101

REACTIONS (9)
  - CARPAL TUNNEL SYNDROME [None]
  - BURNING SENSATION [None]
  - CIRCUMSTANCE OR INFORMATION CAPABLE OF LEADING TO MEDICATION ERROR [None]
  - PAIN IN EXTREMITY [None]
  - SOMNOLENCE [None]
  - INSOMNIA [None]
  - FLUID RETENTION [None]
  - WEIGHT INCREASED [None]
  - FATIGUE [None]
